FAERS Safety Report 23692509 (Version 2)
Quarter: 2024Q2

REPORT INFORMATION
  Report Type: Spontaneous
  Country: US (occurrence: US)
  Receive Date: 20240401
  Receipt Date: 20240405
  Transmission Date: 20240716
  Serious: No
  Sender: FDA-Public Use
  Company Number: US-Eisai-EC-2024-160704

PATIENT
  Age: 63 Year
  Sex: Female
  Weight: 58.06 kg

DRUGS (1)
  1. LEQEMBI [Suspect]
     Active Substance: LECANEMAB-IRMB
     Indication: Dementia Alzheimer^s type
     Dosage: DOSE UNKNOWN
     Route: 042
     Dates: start: 20240103, end: 20240217

REACTIONS (2)
  - Headache [Recovered/Resolved]
  - Amyloid related imaging abnormality-oedema/effusion [Not Recovered/Not Resolved]

NARRATIVE: CASE EVENT DATE: 20240203
